FAERS Safety Report 24618244 (Version 1)
Quarter: 2024Q4

REPORT INFORMATION
  Report Type: Spontaneous
  Country: US (occurrence: None)
  Receive Date: 20241113
  Receipt Date: 20241113
  Transmission Date: 20250114
  Serious: No
  Sender: Public
  Company Number: None

PATIENT
  Age: 51 Year
  Sex: Male
  Weight: 88 kg

DRUGS (1)
  1. CABOTEGRAVIR [Suspect]
     Active Substance: CABOTEGRAVIR
     Indication: Prophylaxis against HIV infection
     Dosage: 600.00 MG UD INTRAMUSCULAR?
     Route: 030
     Dates: start: 20240531

REACTIONS (2)
  - Injection site pain [None]
  - Decreased appetite [None]

NARRATIVE: CASE EVENT DATE: 20240614
